FAERS Safety Report 5344439-9 (Version None)
Quarter: 2007Q2

REPORT INFORMATION
  Report Type: 
  Country: None (occurrence: None)
  Receive Date: 20070604
  Receipt Date: 20070523
  Transmission Date: 20071010
  Serious: Yes (Hospitalization, Other)
  Sender: FDA-Public Use
  Company Number: US-PFIZER INC-2007042024

PATIENT
  Sex: Female
  Weight: 144.22 kg

DRUGS (14)
  1. LYRICA [Suspect]
     Indication: DIABETIC NEUROPATHY
     Route: 048
     Dates: start: 20070222, end: 20070329
  2. COZAAR [Concomitant]
  3. LASIX [Concomitant]
  4. NORVASC [Concomitant]
  5. NADOLOL [Concomitant]
  6. PLAVIX [Concomitant]
  7. VYTORIN [Concomitant]
  8. PREVACID [Concomitant]
  9. IMDUR [Concomitant]
  10. RELAFEN [Concomitant]
  11. MIRAPEX [Concomitant]
  12. LANTUS [Concomitant]
  13. HUMULIN 70/30 [Concomitant]
  14. HUMULIN 50/50 [Concomitant]

REACTIONS (10)
  - ATRIOVENTRICULAR BLOCK SECOND DEGREE [None]
  - BRADYCARDIA [None]
  - CARDIAC FAILURE CONGESTIVE [None]
  - DRUG LEVEL INCREASED [None]
  - FLUID RETENTION [None]
  - HYPOMAGNESAEMIA [None]
  - HYPOXIA [None]
  - RENAL IMPAIRMENT [None]
  - SLEEP APNOEA SYNDROME [None]
  - WEIGHT INCREASED [None]
